FAERS Safety Report 8900856 (Version 2)
Quarter: 2013Q1

REPORT INFORMATION
  Report Type: Report from Study
  Country: CA (occurrence: CA)
  Receive Date: 20121109
  Receipt Date: 20130213
  Transmission Date: 20140127
  Serious: Yes (Life-Threatening)
  Sender: FDA-Public Use
  Company Number: CA-JNJFOC-20121100451

PATIENT
  Age: 48 Year
  Sex: Female
  Weight: 41 kg

DRUGS (14)
  1. REMICADE [Suspect]
     Indication: CROHN^S DISEASE
     Dosage: 10 ML/HOUR
     Route: 042
     Dates: start: 20120424
  2. REMICADE [Suspect]
     Indication: CROHN^S DISEASE
     Route: 042
     Dates: start: 20121031
  3. MORPHINE [Concomitant]
     Route: 065
  4. MULTIVITAMINS [Concomitant]
     Route: 065
  5. IMURAN [Concomitant]
     Route: 065
  6. CALCIUM [Concomitant]
     Route: 065
  7. ACTONEL [Concomitant]
     Route: 065
  8. MAGNESIUM [Concomitant]
     Route: 065
  9. VITAMIN D [Concomitant]
     Route: 065
  10. SOLUCORTEF [Concomitant]
     Indication: PREMEDICATION
     Route: 042
  11. AERIUS [Concomitant]
     Indication: PREMEDICATION
     Route: 048
  12. TYLENOL [Concomitant]
     Indication: PREMEDICATION
     Route: 065
  13. GRAVOL [Concomitant]
     Indication: NAUSEA
     Route: 042
  14. VITAMIN B3 [Concomitant]
     Route: 065

REACTIONS (8)
  - Infusion related reaction [Recovered/Resolved]
  - Blood pressure fluctuation [Recovered/Resolved]
  - Flushing [Recovered/Resolved]
  - Chest discomfort [Recovered/Resolved]
  - Nausea [Recovered/Resolved]
  - Oropharyngeal pain [Recovered/Resolved]
  - Pyrexia [Recovered/Resolved]
  - Cough [Recovered/Resolved]
